FAERS Safety Report 12264398 (Version 1)
Quarter: 2016Q2

REPORT INFORMATION
  Report Type: Spontaneous
  Country: US (occurrence: US)
  Receive Date: 20160413
  Receipt Date: 20160413
  Transmission Date: 20160815
  Serious: No
  Sender: FDA-Public Use
  Company Number: US-JNJFOC-20160304248

PATIENT
  Sex: Female
  Weight: 60.78 kg

DRUGS (2)
  1. MENS ROGAINE [Suspect]
     Active Substance: MINOXIDIL
     Route: 061
  2. MENS ROGAINE [Suspect]
     Active Substance: MINOXIDIL
     Indication: ALOPECIA
     Dosage: WHATEVER DIRECTIONS WERE
     Route: 061

REACTIONS (3)
  - Swollen tongue [Recovered/Resolved]
  - Wrong patient received medication [Recovered/Resolved]
  - Off label use [Recovered/Resolved]
